FAERS Safety Report 4438867-3 (Version None)
Quarter: 2004Q3

REPORT INFORMATION
  Report Type: 
  Country: None (occurrence: None)
  Receive Date: 20040830
  Receipt Date: 20040823
  Transmission Date: 20050211
  Serious: Yes (Hospitalization)
  Sender: FDA-Public Use
  Company Number: 200413948BCC

PATIENT
  Age: 80 Year
  Sex: Female
  Weight: 65.7716 kg

DRUGS (5)
  1. MILK OF MAGNESIA TAB [Suspect]
     Indication: CONSTIPATION
     Dosage: SEE IMAGE
     Route: 048
     Dates: start: 20040428
  2. CATAPRES-TTS-1 [Concomitant]
  3. ZESTRIL [Concomitant]
  4. TENORMIN [Concomitant]
  5. MAXZIDE [Concomitant]

REACTIONS (6)
  - CYSTITIS [None]
  - DIZZINESS [None]
  - FREQUENT BOWEL MOVEMENTS [None]
  - NAUSEA [None]
  - PO2 DECREASED [None]
  - VOMITING [None]
